FAERS Safety Report 9896676 (Version 2)
Quarter: 2014Q1

REPORT INFORMATION
  Report Type: Spontaneous
  Country: US (occurrence: US)
  Receive Date: 20140213
  Receipt Date: 20140213
  Transmission Date: 20141002
  Serious: No
  Sender: FDA-Public Use
  Company Number: US-BRISTOL-MYERS SQUIBB COMPANY-18890046

PATIENT
  Age: 65 Year
  Sex: Female

DRUGS (1)
  1. ABATACEPT SUBQ INJECTION 125MG/ML [Suspect]
     Indication: RHEUMATOID ARTHRITIS
     Dosage: LAST INJECTION:04-MAY-2013?2 INJ
     Route: 058

REACTIONS (3)
  - Pain [Unknown]
  - Hypoacusis [Unknown]
  - Drug ineffective [Unknown]
